FAERS Safety Report 25455856 (Version 1)
Quarter: 2025Q2

REPORT INFORMATION
  Report Type: Spontaneous
  Country: PL (occurrence: PL)
  Receive Date: 20250619
  Receipt Date: 20250619
  Transmission Date: 20250716
  Serious: Yes (Other)
  Sender: REGENERON
  Company Number: PL-BAYER-2025A060380

PATIENT
  Sex: Female

DRUGS (3)
  1. EYLEA HD [Suspect]
     Active Substance: AFLIBERCEPT
     Indication: Diabetic retinal oedema
     Dates: start: 20250127, end: 20250127
  2. EYLEA HD [Suspect]
     Active Substance: AFLIBERCEPT
     Dates: start: 20250414, end: 20250414
  3. INSULIN NOS [Concomitant]
     Active Substance: INSULIN NOS
     Indication: Type 1 diabetes mellitus
     Route: 058
     Dates: start: 2003

REACTIONS (6)
  - Idiopathic orbital inflammation [Recovered/Resolved]
  - Iridocyclitis [Recovered/Resolved]
  - Chorioretinitis [Recovered/Resolved]
  - Vitreous haemorrhage [Recovered/Resolved]
  - Visual impairment [Recovered/Resolved]
  - Eye pain [Recovered/Resolved]

NARRATIVE: CASE EVENT DATE: 20250418
